FAERS Safety Report 7924433-1 (Version None)
Quarter: 2011Q4

REPORT INFORMATION
  Report Type: 
  Country: None (occurrence: None)
  Receive Date: 20111117
  Receipt Date: 20110322
  Transmission Date: 20120403
  Serious: No
  Sender: FDA-Public Use
  Company Number: US-AMGEN-USASP2011011286

PATIENT
  Age: 55 Year
  Sex: Female

DRUGS (1)
  1. ENBREL [Suspect]
     Indication: BEHCET'S SYNDROME
     Dosage: 25 MG, QWK
     Route: 058
     Dates: start: 20101212

REACTIONS (5)
  - INJECTION SITE HAEMATOMA [None]
  - INJECTION SITE ERYTHEMA [None]
  - C-REACTIVE PROTEIN INCREASED [None]
  - INJECTION SITE PAIN [None]
  - RASH [None]
